FAERS Safety Report 4800431-1 (Version None)
Quarter: 2005Q4

REPORT INFORMATION
  Report Type: 
  Country: None (occurrence: None)
  Receive Date: 20051011
  Receipt Date: 20050928
  Transmission Date: 20060501
  Serious: Yes (Hospitalization)
  Sender: FDA-Public Use
  Company Number: 2005BH002211

PATIENT
  Sex: Female

DRUGS (1)
  1. GAMMAGARD S/D [Suspect]
     Indication: IMMUNODEFICIENCY COMMON VARIABLE
     Dosage: IV
     Route: 042

REACTIONS (1)
  - NORMOCHROMIC NORMOCYTIC ANAEMIA [None]
